FAERS Safety Report 13038805 (Version 1)
Quarter: 2016Q4

REPORT INFORMATION
  Report Type: Spontaneous
  Country: GB (occurrence: GB)
  Receive Date: 20161219
  Receipt Date: 20161219
  Transmission Date: 20170207
  Serious: Yes (Disabling, Other)
  Sender: FDA-Public Use
  Company Number: GB-AUROBINDO-AUR-APL-2016-15263

PATIENT
  Age: 50 Year
  Sex: Female
  Weight: 50.8 kg

DRUGS (2)
  1. AMITRIPTYLINE [Concomitant]
     Active Substance: AMITRIPTYLINE
     Indication: PRODUCT USED FOR UNKNOWN INDICATION
     Dosage: FOR A FEW DAYS, DISCONTINUED BEFORE TAKING FLUCONAZOLE.
     Route: 065
  2. FLUCONAZOLE 50MG [Suspect]
     Active Substance: FLUCONAZOLE
     Indication: OESOPHAGEAL CANDIDIASIS
     Dosage: 50 MG, TWO TIMES A DAY
     Route: 048
     Dates: start: 20161110

REACTIONS (3)
  - Urinary tract pain [Not Recovered/Not Resolved]
  - Urinary tract infection [Not Recovered/Not Resolved]
  - Blood urine present [Not Recovered/Not Resolved]

NARRATIVE: CASE EVENT DATE: 20161112
